FAERS Safety Report 4667855-7 (Version None)
Quarter: 2005Q2

REPORT INFORMATION
  Report Type: 
  Country: None (occurrence: None)
  Receive Date: 20050520
  Receipt Date: 20041014
  Transmission Date: 20051028
  Serious: Yes (Hospitalization)
  Sender: FDA-Public Use
  Company Number: US-SANOFI-SYNTHELABO-F01200403195

PATIENT
  Sex: Male
  Weight: 72.7 kg

DRUGS (13)
  1. OXALIPLATIN [Suspect]
     Indication: NON-SMALL CELL LUNG CANCER
     Route: 042
     Dates: start: 20040922, end: 20040922
  2. GEMCITABINE [Suspect]
     Route: 042
     Dates: start: 20040929, end: 20040929
  3. LASIX [Concomitant]
     Dosage: 40 MG
     Route: 048
  4. AMARYL [Concomitant]
     Dosage: 8 MG
     Route: 048
  5. POTASSIUM CHLORIDE [Concomitant]
     Dosage: 60 MEQ
     Route: 065
  6. COUMADIN [Concomitant]
     Dosage: 5 MG
     Route: 048
  7. SYNTHROID [Concomitant]
     Dosage: 0.1 MG
     Route: 048
  8. PREVACID [Concomitant]
     Dosage: 30 MG
     Route: 048
  9. ASPIRIN [Concomitant]
     Dosage: 81 MG
     Route: 048
  10. TYLENOL (CAPLET) [Concomitant]
  11. ATIVAN [Concomitant]
     Indication: NAUSEA
  12. COMPAZINE [Concomitant]
     Indication: NAUSEA
     Dosage: 10 MG
     Route: 048
  13. PERCOCET [Concomitant]
     Indication: PAIN
     Dosage: 5/325 MG PRN
     Route: 048

REACTIONS (4)
  - DISEASE PROGRESSION [None]
  - HYPERKALAEMIA [None]
  - HYPONATRAEMIA [None]
  - PANCYTOPENIA [None]
